FAERS Safety Report 8585655 (Version 2)
Quarter: 2013Q2

REPORT INFORMATION
  Report Type: Spontaneous
  Country: US (occurrence: US)
  Receive Date: 20120530
  Receipt Date: 20130530
  Transmission Date: 20140414
  Serious: No
  Sender: FDA-Public Use
  Company Number: US-GLAXOSMITHKLINE-A0961007A

PATIENT
  Age: 53 Year
  Sex: Female
  Weight: 81.8 kg

DRUGS (2)
  1. FLOLAN [Suspect]
     Indication: PULMONARY ARTERIAL HYPERTENSION
     Dosage: 32NGKM UNKNOWN
     Route: 042
     Dates: start: 20111202
  2. REVATIO [Concomitant]
     Dosage: 20MG THREE TIMES PER DAY

REACTIONS (2)
  - Rash [Not Recovered/Not Resolved]
  - Infusion related reaction [Unknown]
